FAERS Safety Report 8965488 (Version 1)
Quarter: 2012Q4

REPORT INFORMATION
  Report Type: 
  Country: BR (occurrence: BR)
  Receive Date: 20121213
  Receipt Date: 20121213
  Transmission Date: 20130627
  Serious: Yes (Hospitalization)
  Sender: FDA-Public Use
  Company Number: BR-ASTRAZENECA-2012SE91927

PATIENT
  Age: 69 Year
  Sex: Male
  Weight: 59 kg

DRUGS (3)
  1. CRESTOR [Suspect]
     Indication: BLOOD CHOLESTEROL INCREASED
     Dosage: ONE TABLET EVERY THREEE DAYS
     Route: 048
     Dates: start: 2007
  2. EZETROL [Concomitant]
     Indication: BLOOD CHOLESTEROL INCREASED
     Dosage: ONE TABLET EVERY THREE DAYS
     Route: 048
     Dates: start: 2007
  3. D VITAMIN [Concomitant]
     Indication: PROPHYLAXIS
     Route: 048
     Dates: start: 201209

REACTIONS (4)
  - Venous occlusion [Recovered/Resolved]
  - Prehypertension [Recovering/Resolving]
  - Urinary tract infection [Recovered/Resolved]
  - Off label use [Not Recovered/Not Resolved]
